FAERS Safety Report 6066018-0 (Version None)
Quarter: 2009Q1

REPORT INFORMATION
  Report Type: 
  Country: None (occurrence: None)
  Receive Date: 20090205
  Receipt Date: 20090128
  Transmission Date: 20090719
  Serious: Yes (Other)
  Sender: FDA-Public Use
  Company Number: US-AMGEN-QUU267013

PATIENT
  Sex: Male
  Weight: 102.2 kg

DRUGS (1)
  1. ENBREL [Suspect]
     Indication: PSORIASIS
     Route: 058
     Dates: start: 20070920, end: 20080201

REACTIONS (3)
  - HYPOAESTHESIA [None]
  - PSORIASIS [None]
  - SENSORY LOSS [None]
